FAERS Safety Report 11223602 (Version 2)
Quarter: 2015Q3

REPORT INFORMATION
  Report Type: Spontaneous
  Country: JP (occurrence: JP)
  Receive Date: 20150629
  Receipt Date: 20150812
  Transmission Date: 20151125
  Serious: Yes (Hospitalization)
  Sender: FDA-Public Use
  Company Number: JP-UCBSA-2015019881

PATIENT
  Age: 12 Year
  Sex: Female

DRUGS (8)
  1. KEPPRA [Suspect]
     Active Substance: LEVETIRACETAM
     Dosage: DAILY DOSE: 750 MG
     Route: 048
     Dates: start: 20150602, end: 20150609
  2. KEPPRA [Suspect]
     Active Substance: LEVETIRACETAM
     Indication: EPILEPSY
     Dosage: 125 MG, ONCE DAILY (QD)
     Route: 048
     Dates: start: 20150521, end: 20150523
  3. TEGRETOL [Suspect]
     Active Substance: CARBAMAZEPINE
     Dosage: DAILY DOSE: 200 MG
     Route: 048
     Dates: start: 20150610, end: 20150706
  4. KEPPRA [Suspect]
     Active Substance: LEVETIRACETAM
     Dosage: 250 MG, 2X/DAY (BID)
     Route: 048
     Dates: start: 20150525, end: 20150601
  5. TEGRETOL [Suspect]
     Active Substance: CARBAMAZEPINE
     Dosage: DAILY DOSE : 300 MG
     Route: 048
     Dates: start: 20150602, end: 20150609
  6. KEPPRA [Suspect]
     Active Substance: LEVETIRACETAM
     Dosage: DAILY DOSE:1000 MG
     Route: 048
     Dates: start: 20150610, end: 20150618
  7. TEGRETOL [Suspect]
     Active Substance: CARBAMAZEPINE
     Indication: EPILEPSY
     Dosage: DAILY DOSE: 400 MG
     Route: 048
     Dates: start: 201505, end: 20150601
  8. DIAMOX SEQUELS [Suspect]
     Active Substance: ACETAZOLAMIDE
     Indication: EPILEPSY
     Dosage: UNK
     Route: 048
     Dates: end: 20150523

REACTIONS (3)
  - Gait disturbance [Unknown]
  - Hyperventilation [Unknown]
  - Neuropathy peripheral [Recovering/Resolving]

NARRATIVE: CASE EVENT DATE: 20150522
